FAERS Safety Report 12170868 (Version 2)
Quarter: 2016Q4

REPORT INFORMATION
  Report Type: Spontaneous
  Country: US (occurrence: US)
  Receive Date: 20160311
  Receipt Date: 20161202
  Transmission Date: 20170207
  Serious: Yes (Other)
  Sender: FDA-Public Use
  Company Number: US-APOTEX-2016AP007039

PATIENT
  Age: 63 Year
  Sex: Male

DRUGS (4)
  1. MELOXICAM. [Suspect]
     Active Substance: MELOXICAM
     Indication: POLIOMYELITIS
     Dosage: 15 MG, QD AS NEEDED
     Route: 065
  2. MELOXICAM. [Suspect]
     Active Substance: MELOXICAM
     Indication: ARTHRITIS
  3. MELOXICAM. [Suspect]
     Active Substance: MELOXICAM
     Indication: PAIN
  4. MELOXICAM. [Suspect]
     Active Substance: MELOXICAM
     Indication: SWELLING

REACTIONS (2)
  - Haematochezia [Unknown]
  - Gastritis [Unknown]
